FAERS Safety Report 25417299 (Version 1)
Quarter: 2025Q2

REPORT INFORMATION
  Report Type: Spontaneous
  Country: TZ (occurrence: TZ)
  Receive Date: 20250610
  Receipt Date: 20250610
  Transmission Date: 20250717
  Serious: Yes (Death, Life-Threatening, Hospitalization)
  Sender: MYLAN
  Company Number: TZ-MYLANLABS-2025M1048713

PATIENT
  Age: 37 Year
  Sex: Female

DRUGS (40)
  1. PHENYTOIN [Suspect]
     Active Substance: PHENYTOIN
     Indication: Generalised tonic-clonic seizure
  2. PHENYTOIN [Suspect]
     Active Substance: PHENYTOIN
     Route: 065
  3. PHENYTOIN [Suspect]
     Active Substance: PHENYTOIN
     Route: 065
  4. PHENYTOIN [Suspect]
     Active Substance: PHENYTOIN
  5. MIDAZOLAM [Suspect]
     Active Substance: MIDAZOLAM
     Indication: Generalised tonic-clonic seizure
  6. MIDAZOLAM [Suspect]
     Active Substance: MIDAZOLAM
     Route: 065
  7. MIDAZOLAM [Suspect]
     Active Substance: MIDAZOLAM
     Route: 065
  8. MIDAZOLAM [Suspect]
     Active Substance: MIDAZOLAM
  9. PROPOFOL [Suspect]
     Active Substance: PROPOFOL
     Indication: General anaesthesia
  10. PROPOFOL [Suspect]
     Active Substance: PROPOFOL
     Indication: Generalised tonic-clonic seizure
     Route: 065
  11. PROPOFOL [Suspect]
     Active Substance: PROPOFOL
     Route: 065
  12. PROPOFOL [Suspect]
     Active Substance: PROPOFOL
  13. DIAZEPAM [Suspect]
     Active Substance: DIAZEPAM
     Indication: Generalised tonic-clonic seizure
  14. DIAZEPAM [Suspect]
     Active Substance: DIAZEPAM
     Route: 065
  15. DIAZEPAM [Suspect]
     Active Substance: DIAZEPAM
     Route: 065
  16. DIAZEPAM [Suspect]
     Active Substance: DIAZEPAM
  17. HYDROCORTISONE [Suspect]
     Active Substance: HYDROCORTISONE
     Indication: Muscle discomfort
  18. HYDROCORTISONE [Suspect]
     Active Substance: HYDROCORTISONE
     Indication: Pruritus
     Route: 042
  19. HYDROCORTISONE [Suspect]
     Active Substance: HYDROCORTISONE
     Indication: Back pain
     Route: 042
  20. HYDROCORTISONE [Suspect]
     Active Substance: HYDROCORTISONE
  21. MEPERIDINE [Suspect]
     Active Substance: MEPERIDINE
     Indication: General anaesthesia
  22. MEPERIDINE [Suspect]
     Active Substance: MEPERIDINE
     Route: 065
  23. MEPERIDINE [Suspect]
     Active Substance: MEPERIDINE
     Route: 065
  24. MEPERIDINE [Suspect]
     Active Substance: MEPERIDINE
  25. SUCCINYLCHOLINE [Suspect]
     Active Substance: SUCCINYLCHOLINE
     Indication: General anaesthesia
  26. SUCCINYLCHOLINE [Suspect]
     Active Substance: SUCCINYLCHOLINE
     Route: 065
  27. SUCCINYLCHOLINE [Suspect]
     Active Substance: SUCCINYLCHOLINE
     Route: 065
  28. SUCCINYLCHOLINE [Suspect]
     Active Substance: SUCCINYLCHOLINE
  29. TRANEXAMIC ACID [Suspect]
     Active Substance: TRANEXAMIC ACID
     Indication: Drug therapy
  30. TRANEXAMIC ACID [Suspect]
     Active Substance: TRANEXAMIC ACID
     Route: 037
  31. TRANEXAMIC ACID [Suspect]
     Active Substance: TRANEXAMIC ACID
     Route: 037
  32. TRANEXAMIC ACID [Suspect]
     Active Substance: TRANEXAMIC ACID
  33. POVIDONE-IODINE [Suspect]
     Active Substance: POVIDONE-IODINE
     Indication: Infection prophylaxis
  34. POVIDONE-IODINE [Suspect]
     Active Substance: POVIDONE-IODINE
     Route: 065
  35. POVIDONE-IODINE [Suspect]
     Active Substance: POVIDONE-IODINE
     Route: 065
  36. POVIDONE-IODINE [Suspect]
     Active Substance: POVIDONE-IODINE
  37. BUPIVACAINE [4]
     Active Substance: BUPIVACAINE
     Indication: Spinal anaesthesia
  38. BUPIVACAINE [4]
     Active Substance: BUPIVACAINE
     Route: 065
  39. BUPIVACAINE [4]
     Active Substance: BUPIVACAINE
     Route: 065
  40. BUPIVACAINE [4]
     Active Substance: BUPIVACAINE

REACTIONS (2)
  - Maternal exposure during delivery [Fatal]
  - Drug ineffective [Unknown]
